FAERS Safety Report 6966902-7 (Version None)
Quarter: 2010Q3

REPORT INFORMATION
  Report Type: 
  Country: None (occurrence: None)
  Receive Date: 20100906
  Receipt Date: 20100906
  Transmission Date: 20110219
  Serious: Yes (Hospitalization, Other)
  Sender: FDA-Public Use
  Company Number: PHHO2009NZ14268

PATIENT
  Sex: Female
  Weight: 55.3 kg

DRUGS (5)
  1. DICLOFENAC SODIUM [Suspect]
     Indication: MUSCULOSKELETAL PAIN
     Dosage: UNK
     Dates: start: 20091007, end: 20091104
  2. PLACEBO COMP-PLA+ [Suspect]
     Indication: NON-SMALL CELL LUNG CANCER
     Dosage: PLACEBO
     Route: 042
     Dates: start: 20091007, end: 20091104
  3. ASPIRIN [Concomitant]
  4. PACLITAXEL [Concomitant]
     Dosage: UNK
     Dates: start: 20091007
  5. CARBOPLATIN [Concomitant]
     Dosage: UNK
     Dates: start: 20091007

REACTIONS (8)
  - ABDOMINAL PAIN [None]
  - CLOSTRIDIUM DIFFICILE COLITIS [None]
  - DIARRHOEA [None]
  - GASTRIC ULCER PERFORATION [None]
  - GASTRIC ULCER SURGERY [None]
  - LAPAROTOMY [None]
  - PERFORMANCE STATUS DECREASED [None]
  - PNEUMOPERITONEUM [None]
